FAERS Safety Report 6235493-0 (Version None)
Quarter: 2009Q2

REPORT INFORMATION
  Report Type: 
  Country: None (occurrence: None)
  Receive Date: 20090618
  Receipt Date: 20080522
  Transmission Date: 20091009
  Serious: No
  Sender: FDA-Public Use
  Company Number: US-ASTRAZENECA-2008UW10528

PATIENT
  Age: 72 Year
  Sex: Male

DRUGS (11)
  1. RHINOCORT [Suspect]
     Indication: SINUS DISORDER
     Dosage: 4 SPRAYS IN EACH NOSTRIL - TWO IN THE MORNING AND TWO AT NIGHT
     Route: 045
     Dates: start: 20080516
  2. HYDROCODONE BITARTRATE [Concomitant]
  3. DOXEPIN HYDROCHLORIDE [Concomitant]
  4. FUROSEMIDE [Concomitant]
  5. ADVICOR [Concomitant]
  6. LABETALOL HCL [Concomitant]
  7. DILTIAZEM [Concomitant]
  8. ASPIRIN [Concomitant]
  9. COQ10 [Concomitant]
  10. GLUCOSAMINE [Concomitant]
  11. MELATONIN [Concomitant]

REACTIONS (3)
  - DRY SKIN [None]
  - HOT FLUSH [None]
  - PRURITUS GENERALISED [None]
